FAERS Safety Report 5317685-8 (Version None)
Quarter: 2007Q2

REPORT INFORMATION
  Report Type: 
  Country: None (occurrence: None)
  Receive Date: 20070507
  Receipt Date: 20070424
  Transmission Date: 20071010
  Serious: Yes (Hospitalization)
  Sender: FDA-Public Use
  Company Number: BR-JNJFOC-20070500953

PATIENT
  Sex: Male

DRUGS (8)
  1. TRAMADOL HCL [Suspect]
     Indication: PAIN
     Route: 048
  2. GABAPENTIN [Suspect]
     Route: 048
  3. GABAPENTIN [Suspect]
     Indication: BRACHIAL PLEXUS INJURY
     Route: 048
  4. ACETAMINOPHEN W/ CODEINE [Concomitant]
     Route: 048
  5. MORPHINE [Concomitant]
     Route: 065
  6. AMITRIPTYLINE HCL [Concomitant]
     Route: 048
  7. CARBAMAZEPINE [Concomitant]
     Route: 065
  8. CHLORPROMAZINE [Concomitant]
     Route: 065

REACTIONS (5)
  - CHOLELITHIASIS [None]
  - DRUG INEFFECTIVE [None]
  - GASTRITIS [None]
  - GASTROOESOPHAGEAL REFLUX DISEASE [None]
  - HIATUS HERNIA [None]
